FAERS Safety Report 9399475 (Version 3)
Quarter: 2014Q1

REPORT INFORMATION
  Report Type: Spontaneous
  Country: US (occurrence: US)
  Receive Date: 20130715
  Receipt Date: 20140212
  Transmission Date: 20141002
  Serious: Yes (Hospitalization)
  Sender: FDA-Public Use
  Company Number: US-BIOGENIDEC-2013BI062616

PATIENT
  Age: 44 Year
  Sex: Female

DRUGS (3)
  1. TYSABRI [Suspect]
     Indication: MULTIPLE SCLEROSIS
     Route: 042
     Dates: start: 20121017, end: 20130516
  2. MORPHINE LONG ACTING [Concomitant]
     Indication: SCIATICA
     Route: 048
  3. OXYCODONE [Concomitant]
     Indication: SCIATICA
     Route: 048

REACTIONS (20)
  - Hallucination [Recovered/Resolved]
  - Fatigue [Recovered/Resolved]
  - Amnesia [Recovered/Resolved]
  - Urinary tract infection [Unknown]
  - Blood cannabinoids increased [Unknown]
  - Opiates positive [Unknown]
  - Local swelling [Recovered/Resolved]
  - Fall [Recovered/Resolved]
  - Muscle rupture [Unknown]
  - Muscular weakness [Not Recovered/Not Resolved]
  - Cystitis noninfective [Unknown]
  - Peroneal nerve palsy [Recovered/Resolved]
  - Contusion [Recovered/Resolved]
  - Periorbital contusion [Recovered/Resolved]
  - Depression [Not Recovered/Not Resolved]
  - Rash macular [Recovered/Resolved]
  - Loss of bladder sensation [Not Recovered/Not Resolved]
  - Rash generalised [Recovered/Resolved]
  - Pain in extremity [Not Recovered/Not Resolved]
  - Visual impairment [Not Recovered/Not Resolved]
